FAERS Safety Report 18043485 (Version 1)
Quarter: 2020Q3

REPORT INFORMATION
  Report Type: Spontaneous
  Country: US (occurrence: US)
  Receive Date: 20200717
  Receipt Date: 20200717
  Transmission Date: 20201103
  Serious: Yes (Disabling)
  Sender: FDA-Public Use
  Company Number: None

PATIENT
  Age: 57 Year
  Sex: Male
  Weight: 81.9 kg

DRUGS (8)
  1. FISH OIL [Concomitant]
     Active Substance: FISH OIL
  2. GENERIC PRILOSEC [Concomitant]
     Active Substance: OMEPRAZOLE MAGNESIUM
  3. MULTI?VITAMINS [Concomitant]
  4. MOXIFLOXACIN HCL GENERIC FOR AVELOX 400MG [Suspect]
     Active Substance: MOXIFLOXACIN HYDROCHLORIDE
     Indication: SKIN INFECTION
     Dosage: ?          QUANTITY:1 TABLET(S);?
     Route: 048
     Dates: start: 20181002, end: 20181005
  5. COLLAGEN [Concomitant]
     Active Substance: COLLAGEN
  6. MAGNESIUM OIL [Concomitant]
  7. BUPRENORPHINE. [Concomitant]
     Active Substance: BUPRENORPHINE
  8. LIDOCAINE PATCHES [Concomitant]
     Active Substance: LIDOCAINE

REACTIONS (9)
  - Tendon pain [None]
  - Inability to afford medication [None]
  - Joint lock [None]
  - Peripheral swelling [None]
  - Eyelid disorder [None]
  - Middle insomnia [None]
  - Arthralgia [None]
  - Neuropathy peripheral [None]
  - Arrhythmia [None]

NARRATIVE: CASE EVENT DATE: 20181005
